FAERS Safety Report 11234818 (Version 2)
Quarter: 2015Q3

REPORT INFORMATION
  Report Type: Spontaneous
  Country: US (occurrence: US)
  Receive Date: 20150702
  Receipt Date: 20150709
  Transmission Date: 20151125
  Serious: Yes (Death, Hospitalization, Other)
  Sender: FDA-Public Use
  Company Number: US-AMGEN-USASP2015063622

PATIENT
  Age: 93 Year
  Sex: Female
  Weight: 40.82 kg

DRUGS (14)
  1. ARTIFICIAL TEARS                   /00222401/ [Concomitant]
     Dosage: UNK UNK, QID
  2. IBUPROFEN. [Concomitant]
     Active Substance: IBUPROFEN
     Dosage: 200 MG, QD, AS NECESSARY
     Route: 048
  3. LEVOTHYROXINE. [Concomitant]
     Active Substance: LEVOTHYROXINE
     Dosage: 50 MUG, QD
     Route: 048
  4. PROLIA [Suspect]
     Active Substance: DENOSUMAB
     Indication: OSTEOPOROSIS
     Dosage: 60 MG/ML, Q6MO
     Route: 058
     Dates: start: 2012
  5. AMLODIPINE [Concomitant]
     Active Substance: AMLODIPINE BESYLATE
     Dosage: 2.5 MG, QD
     Route: 048
  6. PREDNISONE. [Concomitant]
     Active Substance: PREDNISONE
  7. CENTRUM SILVER                     /02363801/ [Concomitant]
     Active Substance: VITAMINS
     Dosage: UNK UNK, QD
     Route: 048
  8. PLAQUENIL [Concomitant]
     Active Substance: HYDROXYCHLOROQUINE SULFATE
  9. LOPERAMIDE [Concomitant]
     Active Substance: LOPERAMIDE
     Dosage: 2 MG, QD, AS NECESSARY
     Route: 048
  10. ONDANSETRON [Concomitant]
     Active Substance: ONDANSETRON
     Dosage: 8 MG, QD, AS NECESSARY
     Route: 048
  11. FERROUS SULFATE [Concomitant]
     Active Substance: FERROUS SULFATE\FERROUS SULFATE, DRIED
     Dosage: 325 MG, BID
     Route: 048
  12. POTASSIUM CHLORIDE. [Concomitant]
     Active Substance: POTASSIUM CHLORIDE
     Dosage: 20 MEQ, QD
     Route: 048
  13. CALTRATE WITH VITAMIN D [Concomitant]
     Active Substance: CALCIUM CARBONATE\VITAMIN D
     Dosage: UNK UNK, TID
     Route: 048
  14. ROBAFEN                            /00048001/ [Concomitant]
     Dosage: UNK UNK, QD, AS NECESSARY
     Route: 048

REACTIONS (20)
  - Metabolic encephalopathy [Fatal]
  - Hyperkalaemia [Fatal]
  - Liver function test abnormal [Unknown]
  - Polyarthritis [Unknown]
  - Osteoarthritis [Unknown]
  - Visual impairment [Unknown]
  - Anti-cyclic citrullinated peptide antibody positive [Unknown]
  - Renal failure [Unknown]
  - Rheumatoid factor decreased [Unknown]
  - Bursitis [Unknown]
  - Aspiration [Fatal]
  - Hypoxia [Fatal]
  - Dementia [Unknown]
  - Chronic kidney disease [Unknown]
  - Septic shock [Unknown]
  - Anaemia [Fatal]
  - Hypokalaemia [Fatal]
  - Dysphagia [Unknown]
  - Joint effusion [Unknown]
  - Condition aggravated [Unknown]
